FAERS Safety Report 19986109 (Version 1)
Quarter: 2021Q4

REPORT INFORMATION
  Report Type: Spontaneous
  Country: CH (occurrence: CH)
  Receive Date: 20211022
  Receipt Date: 20211022
  Transmission Date: 20220303
  Serious: Yes (Hospitalization, Other)
  Sender: FDA-Public Use
  Company Number: CH-009507513-2109CHE003895

PATIENT
  Age: 76 Year
  Sex: Male

DRUGS (3)
  1. KEYTRUDA [Suspect]
     Active Substance: PEMBROLIZUMAB
     Indication: Metastatic malignant melanoma
     Dosage: 200 MILLIGRAM, 3 TIMES AT INTERVALS OF THREE TO FOUR WEEKS.
     Route: 042
     Dates: start: 20200722, end: 20200722
  2. KEYTRUDA [Suspect]
     Active Substance: PEMBROLIZUMAB
     Dosage: 200 MILLIGRAM, 3 TIMES AT INTERVALS OF THREE TO FOUR WEEKS.
     Route: 042
     Dates: start: 20200816, end: 20200816
  3. KEYTRUDA [Suspect]
     Active Substance: PEMBROLIZUMAB
     Dosage: 200 MILLIGRAM, 3 TIMES AT INTERVALS OF THREE TO FOUR WEEKS.
     Route: 042
     Dates: start: 20200902, end: 20200902

REACTIONS (5)
  - Autoimmune myositis [Recovered/Resolved]
  - Myocardial oedema [Unknown]
  - Poor quality sleep [Unknown]
  - Myocardial fibrosis [Unknown]
  - Inappropriate schedule of product administration [Unknown]

NARRATIVE: CASE EVENT DATE: 20200101
